FAERS Safety Report 23331091 (Version 1)
Quarter: 2023Q4

REPORT INFORMATION
  Report Type: Spontaneous
  Country: US (occurrence: None)
  Receive Date: 20231221
  Receipt Date: 20231221
  Transmission Date: 20240110
  Serious: Yes (Other)
  Sender: FDA-Public Use
  Company Number: None

PATIENT
  Age: 56 Year
  Sex: Female
  Weight: 72 kg

DRUGS (1)
  1. EDARAVONE [Suspect]
     Active Substance: EDARAVONE
     Indication: Amyotrophic lateral sclerosis
     Dates: start: 20231126, end: 20231209

REACTIONS (9)
  - Tachycardia [None]
  - Rash maculo-papular [None]
  - Rash pruritic [None]
  - Heart rate increased [None]
  - Nausea [None]
  - Arthralgia [None]
  - Hyponatraemia [None]
  - Joint swelling [None]
  - Peripheral swelling [None]

NARRATIVE: CASE EVENT DATE: 20231210
